FAERS Safety Report 21816436 (Version 1)
Quarter: 2023Q1

REPORT INFORMATION
  Report Type: Spontaneous
  Country: US (occurrence: None)
  Receive Date: 20230103
  Receipt Date: 20230103
  Transmission Date: 20230417
  Serious: Yes (Other)
  Sender: FDA-Public Use
  Company Number: None

PATIENT
  Age: 59 Year
  Sex: Male

DRUGS (1)
  1. DUPIXENT [Suspect]
     Active Substance: DUPILUMAB
     Indication: Dermatitis atopic
     Dosage: FREQUENCY : EVERY OTHER WEEK;?
     Route: 058
     Dates: start: 20221211

REACTIONS (6)
  - Swelling face [None]
  - Rash [None]
  - Eyelid rash [None]
  - Dyspnoea [None]
  - Dysphagia [None]
  - Hypersensitivity [None]

NARRATIVE: CASE EVENT DATE: 20221225
